FAERS Safety Report 13036000 (Version 2)
Quarter: 2017Q1

REPORT INFORMATION
  Report Type: Spontaneous
  Country: JP (occurrence: JP)
  Receive Date: 20161216
  Receipt Date: 20170201
  Transmission Date: 20170428
  Serious: Yes (Death, Hospitalization)
  Sender: FDA-Public Use
  Company Number: JP-MYLANLABS-16X-087-1268890-00

PATIENT

DRUGS (11)
  1. ETHAMBUTOL HYDROCHLORIDE. [Suspect]
     Active Substance: ETHAMBUTOL HYDROCHLORIDE
     Indication: MYCOBACTERIAL INFECTION
     Dosage: UNK
     Route: 048
  2. RIFAMPICIN [Suspect]
     Active Substance: RIFAMPIN
     Indication: MYCOBACTERIAL INFECTION
     Dosage: UNK
     Route: 048
  3. RIFAMPICIN [Suspect]
     Active Substance: RIFAMPIN
     Indication: PULMONARY FIBROSIS
  4. ETHAMBUTOL HYDROCHLORIDE. [Suspect]
     Active Substance: ETHAMBUTOL HYDROCHLORIDE
     Indication: PULMONARY FIBROSIS
  5. CLARITHROMYCIN MYLAN [Suspect]
     Active Substance: CLARITHROMYCIN
     Indication: MYCOBACTERIAL INFECTION
     Dosage: UNK
     Route: 048
  6. MENATETRENONE [Concomitant]
     Active Substance: MENATETRENONE
     Indication: VITAMIN K DEFICIENCY
     Dosage: UNK
  7. CEFMETAZOLE [Suspect]
     Active Substance: CEFMETAZOLE
     Indication: ILEUS
     Dosage: UNK
     Route: 048
  8. CEFMETAZOLE [Suspect]
     Active Substance: CEFMETAZOLE
     Indication: PULMONARY FIBROSIS
  9. CLARITHROMYCIN MYLAN [Suspect]
     Active Substance: CLARITHROMYCIN
     Indication: PULMONARY FIBROSIS
  10. CEFMETAZOLE [Suspect]
     Active Substance: CEFMETAZOLE
     Indication: MYCOBACTERIAL INFECTION
  11. OXYGEN THERAPY [Concomitant]
     Active Substance: OXYGEN
     Indication: PNEUMOTHORAX
     Dosage: UNK

REACTIONS (5)
  - Death [Fatal]
  - Cardio-respiratory arrest [Unknown]
  - Ileus [Unknown]
  - Vitamin K deficiency [Unknown]
  - Coagulopathy [Unknown]
